FAERS Safety Report 10944422 (Version 7)
Quarter: 2017Q2

REPORT INFORMATION
  Report Type: Report from Study
  Country: FR (occurrence: FR)
  Receive Date: 20150323
  Receipt Date: 20170421
  Transmission Date: 20170829
  Serious: Yes (Hospitalization, Other)
  Sender: FDA-Public Use
  Company Number: FR-ROCHE-1469584

PATIENT
  Age: 40 Year
  Sex: Male
  Weight: 60 kg

DRUGS (5)
  1. CYCLOPHOSPHAMIDE. [Suspect]
     Active Substance: CYCLOPHOSPHAMIDE
     Indication: LYMPHOMA
     Dosage: THE LAST DOSE PRIOR TO THE DETERIORATION OF GENERAL STATUS, TUMOR LYSIS SYNDROME AND BOTH EPISODES O
     Route: 065
     Dates: start: 20140926, end: 20140926
  2. OBINUTUZUMAB [Suspect]
     Active Substance: OBINUTUZUMAB
     Indication: DIFFUSE LARGE B-CELL LYMPHOMA
     Dosage: DATE OF LAST DOSE PRIOR TO DETERIORATION OF GENERAL STATUS, TUMOR LYSIS SYNDROME AND BOTH EPISODES O
     Route: 065
     Dates: start: 20140926
  3. DOXORUBICIN [Suspect]
     Active Substance: DOXORUBICIN
     Indication: LYMPHOMA
     Dosage: THE LAST DOSE PRIOR TO THE DETERIORATION OF GENERAL STATUS, TUMOR LYSIS SYNDROME AND BOTH EPISODES O
     Route: 065
     Dates: start: 20140926, end: 20140926
  4. PREDNISOLONE. [Suspect]
     Active Substance: PREDNISOLONE
     Indication: LYMPHOMA
     Dosage: THE LAST DOSE PRIOR TO THE DETERIORATION OF GENERAL STATUS, TUMOR LYSIS SYNDROME AND BOTH EPISODES O
     Route: 065
     Dates: start: 20140926, end: 20140926
  5. VINCRISTINE [Suspect]
     Active Substance: VINCRISTINE
     Indication: LYMPHOMA
     Dosage: THE LAST DOSE PRIOR TO THE DETERIORATION OF GENERAL STATUS, TUMOR LYSIS SYNDROME AND BOTH EPISODES O
     Route: 065
     Dates: start: 20140926, end: 20140926

REACTIONS (4)
  - Diarrhoea [Recovered/Resolved]
  - General physical health deterioration [Recovered/Resolved]
  - Tumour lysis syndrome [Recovered/Resolved]
  - General physical health deterioration [Recovered/Resolved]

NARRATIVE: CASE EVENT DATE: 20140926
